FAERS Safety Report 6125097-2 (Version None)
Quarter: 2009Q1

REPORT INFORMATION
  Report Type: 
  Country: None (occurrence: None)
  Receive Date: 20090318
  Receipt Date: 20090310
  Transmission Date: 20090719
  Serious: Yes (Hospitalization)
  Sender: FDA-Public Use
  Company Number: 2009AL001433

PATIENT
  Sex: Male

DRUGS (1)
  1. DIGOXIN [Suspect]
     Dosage: PO
     Route: 048
     Dates: start: 20071224, end: 20080607

REACTIONS (17)
  - ANHEDONIA [None]
  - ANXIETY [None]
  - BRADYCARDIA [None]
  - CONDITION AGGRAVATED [None]
  - ECONOMIC PROBLEM [None]
  - FACE INJURY [None]
  - FALL [None]
  - HYPOTENSION [None]
  - ILL-DEFINED DISORDER [None]
  - JOINT INJURY [None]
  - MULTIPLE INJURIES [None]
  - OVERDOSE [None]
  - PAIN [None]
  - QUALITY OF LIFE DECREASED [None]
  - RIB FRACTURE [None]
  - SYNCOPE [None]
  - THERAPEUTIC AGENT TOXICITY [None]
